FAERS Safety Report 6524304-1 (Version None)
Quarter: 2009Q4

REPORT INFORMATION
  Report Type: 
  Country: None (occurrence: None)
  Receive Date: 20091231
  Receipt Date: 20091222
  Transmission Date: 20100525
  Serious: Yes (Life-Threatening)
  Sender: FDA-Public Use
  Company Number: US-MERCK-0911USA03487

PATIENT
  Age: 41 Year
  Sex: Male

DRUGS (5)
  1. PRINIVIL [Suspect]
     Indication: HYPERTENSION
     Route: 048
  2. ASPIRIN [Concomitant]
     Route: 065
  3. GARLIC [Concomitant]
     Route: 065
  4. CALCIUM (UNSPECIFIED) [Concomitant]
     Route: 065
  5. MINERALS (UNSPECIFIED) [Concomitant]
     Route: 065

REACTIONS (3)
  - ACCIDENTAL EXPOSURE [None]
  - ANGIOEDEMA [None]
  - DRUG DOSE OMISSION [None]
